FAERS Safety Report 7943692-2 (Version None)
Quarter: 2011Q4

REPORT INFORMATION
  Report Type: 
  Country: None (occurrence: None)
  Receive Date: 20111128
  Receipt Date: 20111123
  Transmission Date: 20120403
  Serious: Yes (Other)
  Sender: FDA-Public Use
  Company Number: AU-PFIZER INC-2011285999

PATIENT
  Sex: Male

DRUGS (2)
  1. VARENICLINE TARTRATE [Suspect]
  2. INSULIN [Concomitant]

REACTIONS (7)
  - BEDRIDDEN [None]
  - OEDEMA PERIPHERAL [None]
  - PERICARDIAL EFFUSION [None]
  - LUNG DISORDER [None]
  - WITHDRAWAL SYNDROME [None]
  - FEELING ABNORMAL [None]
  - DYSPHONIA [None]
